FAERS Safety Report 23169914 (Version 1)
Quarter: 2023Q4

REPORT INFORMATION
  Report Type: Spontaneous
  Country: US (occurrence: US)
  Receive Date: 20231110
  Receipt Date: 20231110
  Transmission Date: 20240109
  Serious: Yes (Other)
  Sender: FDA-Public Use
  Company Number: US-APOTEX-2023AP016371

PATIENT
  Age: 16 Year
  Sex: Female

DRUGS (4)
  1. MYCOPHENOLATE SODIUM [Suspect]
     Active Substance: MYCOPHENOLATE SODIUM
     Indication: Immunosuppressant drug therapy
     Dosage: 1000 MILLIGRAM, BID
     Route: 065
  2. PREDNISONE [Suspect]
     Active Substance: PREDNISONE
     Indication: Immunosuppressant drug therapy
     Dosage: UNK
     Route: 065
  3. TACROLIMUS [Suspect]
     Active Substance: TACROLIMUS
     Indication: Immunosuppressant drug therapy
     Dosage: UNK (GOAL 10-12 NG/ML)
     Route: 065
  4. TACROLIMUS [Suspect]
     Active Substance: TACROLIMUS
     Dosage: UNK (GOAL 4-6 NG/ML)
     Route: 065

REACTIONS (1)
  - Cytomegalovirus infection reactivation [Recovered/Resolved]
